FAERS Safety Report 13575205 (Version 1)
Quarter: 2017Q2

REPORT INFORMATION
  Report Type: Spontaneous
  Country: US (occurrence: US)
  Receive Date: 20170523
  Receipt Date: 20170523
  Transmission Date: 20170830
  Serious: Yes (Other)
  Sender: FDA-Public Use
  Company Number: None

PATIENT
  Age: 49 Year
  Sex: Male

DRUGS (1)
  1. CEFAZOLIN [Suspect]
     Active Substance: CEFAZOLIN
     Indication: WOUND INFECTION
     Route: 042
     Dates: start: 20170413, end: 20170518

REACTIONS (3)
  - Urticaria [None]
  - Tongue disorder [None]
  - Rash generalised [None]

NARRATIVE: CASE EVENT DATE: 20170518
